FAERS Safety Report 11141970 (Version 2)
Quarter: 2015Q3

REPORT INFORMATION
  Report Type: Spontaneous
  Country: DE (occurrence: DE)
  Receive Date: 20150527
  Receipt Date: 20150706
  Transmission Date: 20151125
  Serious: Yes (Other)
  Sender: FDA-Public Use
  Company Number: ALCN2015DE003310

PATIENT
  Age: 81 Year
  Sex: Male
  Weight: 86 kg

DRUGS (10)
  1. VITALUX PLUS [Suspect]
     Active Substance: VITAMINS
     Indication: PRODUCT USED FOR UNKNOWN INDICATION
     Dosage: UNK
     Route: 048
  2. L-THYROXIN [Concomitant]
     Active Substance: LEVOTHYROXINE SODIUM
     Indication: THYROID DISORDER
     Dosage: 1 DF, QD
     Route: 065
  3. CANDECOR [Concomitant]
     Indication: PRODUCT USED FOR UNKNOWN INDICATION
     Dosage: 1 DF, BID
     Route: 065
  4. CLOPIDOGREL TAD [Concomitant]
     Indication: VEIN DISORDER
     Dosage: 1 DF, QD
     Route: 065
  5. WOBENZYM P [Concomitant]
     Indication: PRODUCT USED FOR UNKNOWN INDICATION
     Dosage: 3 DF, QD
     Route: 065
  6. FINASTERID AUROBINDO [Concomitant]
     Indication: PROSTATIC DISORDER
     Dosage: UNK
     Route: 065
  7. SILDENAFIL ZENTIVA [Concomitant]
     Indication: PRODUCT USED FOR UNKNOWN INDICATION
     Dosage: UNK
     Route: 065
  8. HCT [Concomitant]
     Active Substance: HYDROCHLOROTHIAZIDE
     Indication: PRODUCT USED FOR UNKNOWN INDICATION
     Dosage: UNK
     Route: 065
  9. AMLODIPIN ^ORIFARM^ [Concomitant]
     Indication: BLOOD PRESSURE MEASUREMENT
     Dosage: 1 DF, BID
     Route: 065
  10. VALERIAN [Concomitant]
     Active Substance: VALERIAN
     Indication: PRODUCT USED FOR UNKNOWN INDICATION
     Dosage: UNK
     Route: 065

REACTIONS (2)
  - Age-related macular degeneration [Unknown]
  - Macular degeneration [Recovering/Resolving]

NARRATIVE: CASE EVENT DATE: 201412
